FAERS Safety Report 13852581 (Version 1)
Quarter: 2017Q3

REPORT INFORMATION
  Report Type: Spontaneous
  Country: US (occurrence: US)
  Receive Date: 20170809
  Receipt Date: 20170809
  Transmission Date: 20171127
  Serious: No
  Sender: FDA-Public Use
  Company Number: US-ROCHE-640149

PATIENT
  Sex: Female

DRUGS (3)
  1. BONIVA [Suspect]
     Active Substance: IBANDRONATE SODIUM
     Indication: PRODUCT USED FOR UNKNOWN INDICATION
     Route: 048
  2. ALDACTONE [Concomitant]
     Active Substance: SPIRONOLACTONE
     Route: 065
  3. CLONIDINE. [Concomitant]
     Active Substance: CLONIDINE
     Route: 065

REACTIONS (1)
  - Contusion [Not Recovered/Not Resolved]
